FAERS Safety Report 4470159-9 (Version None)
Quarter: 2004Q3

REPORT INFORMATION
  Report Type: 
  Country: None (occurrence: None)
  Receive Date: 20040910
  Receipt Date: 20040726
  Transmission Date: 20050211
  Serious: No
  Sender: FDA-Public Use
  Company Number: 2004225948US

PATIENT
  Age: 70 Year
  Sex: Male
  Weight: 72.6 kg

DRUGS (2)
  1. BEXTRA [Suspect]
     Indication: NECK PAIN
     Dosage: 20 MG, ORAL
     Route: 048
     Dates: start: 20040624, end: 20040701
  2. MULTIVITAMIN [Concomitant]

REACTIONS (3)
  - BLISTER [None]
  - RASH PRURITIC [None]
  - SKIN DESQUAMATION [None]
